FAERS Safety Report 11772715 (Version 1)
Quarter: 2015Q4

REPORT INFORMATION
  Report Type: Spontaneous
  Country: FR (occurrence: FR)
  Receive Date: 20151124
  Receipt Date: 20151124
  Transmission Date: 20160304
  Serious: Yes (Other)
  Sender: FDA-Public Use
  Company Number: FR-PFIZER INC-2015395404

PATIENT
  Age: 52 Year
  Sex: Female

DRUGS (2)
  1. AROMASINE [Suspect]
     Active Substance: EXEMESTANE
     Indication: BREAST CANCER
     Dosage: 25 MG, 1X/DAY
     Dates: start: 20150618, end: 20150924
  2. TEMESTA /00273201/ [Concomitant]
     Active Substance: LORAZEPAM
     Dosage: SMALL AMOUNT

REACTIONS (9)
  - Depressed level of consciousness [Unknown]
  - Visual acuity reduced [Unknown]
  - Fatigue [Unknown]
  - Back pain [Unknown]
  - Asthenia [Unknown]
  - Fall [Recovered/Resolved]
  - Insomnia [Unknown]
  - Malaise [Recovered/Resolved]
  - Contusion [Unknown]

NARRATIVE: CASE EVENT DATE: 2015
